FAERS Safety Report 5033682-4 (Version None)
Quarter: 2006Q2

REPORT INFORMATION
  Report Type: 
  Country: None (occurrence: None)
  Receive Date: 20060623
  Receipt Date: 20060615
  Transmission Date: 20061013
  Serious: Yes (Hospitalization)
  Sender: FDA-Public Use
  Company Number: B06000085

PATIENT
  Age: 81 Year
  Sex: Female

DRUGS (4)
  1. PAROXETINE HCL [Suspect]
     Indication: DEPRESSION
     Dosage: 20MG PER DAY
     Route: 048
  2. BROMAZEPAM [Suspect]
     Indication: ANXIETY
     Route: 048
  3. SINEMET [Suspect]
     Indication: PARKINSON'S DISEASE
     Dosage: 1UNIT PER DAY
  4. EXELON [Suspect]
     Indication: DEMENTIA ALZHEIMER'S TYPE
     Dosage: 1UNIT PER DAY

REACTIONS (4)
  - CEREBRAL HAEMATOMA [None]
  - CEREBRAL HAEMORRHAGE [None]
  - FALL [None]
  - LOSS OF CONSCIOUSNESS [None]
